FAERS Safety Report 7032801-8 (Version None)
Quarter: 2010Q4

REPORT INFORMATION
  Report Type: 
  Country: None (occurrence: None)
  Receive Date: 20101005
  Receipt Date: 20100920
  Transmission Date: 20110411
  Serious: Yes (Other)
  Sender: FDA-Public Use
  Company Number: GB-ACCORD-004451

PATIENT
  Age: 66 Year
  Sex: Male

DRUGS (8)
  1. BICALUTAMIDE [Suspect]
     Indication: PROSTATE CANCER
     Dosage: 50.00-MG-1.0 DAYS, ORAL
     Route: 048
     Dates: start: 20050701
  2. LEUPROLIDE ACETATE [Suspect]
     Indication: PROSTATE CANCER
     Dosage: 22.50 MG, INTRAMUSCULAR
     Route: 030
     Dates: start: 20050701
  3. LISINOPRIL [Concomitant]
  4. FUROSEMIDE [Concomitant]
  5. CELECOXIB [Concomitant]
  6. DOCUSATE SODIUM (DOCUSATE SODIUM) [Concomitant]
  7. ASPIRIN [Concomitant]
  8. ACETAMINOPHEN W/CODEINE (ACETAMINOPHEN W/CODEINE) [Concomitant]

REACTIONS (9)
  - CARDIAC FAILURE CONGESTIVE [None]
  - DIZZINESS [None]
  - DRUG TOLERANCE DECREASED [None]
  - GYNAECOMASTIA [None]
  - HALLUCINATION [None]
  - HOT FLUSH [None]
  - HYPOTONIA [None]
  - MUSCULAR WEAKNESS [None]
  - PRESYNCOPE [None]
